FAERS Safety Report 25746595 (Version 1)
Quarter: 2025Q3

REPORT INFORMATION
  Report Type: Spontaneous
  Country: CN (occurrence: CN)
  Receive Date: 20250901
  Receipt Date: 20250901
  Transmission Date: 20251021
  Serious: Yes (Death, Hospitalization)
  Sender: NOVARTIS
  Company Number: CN-002147023-NVSC2025CN136166

PATIENT
  Age: 74 Year

DRUGS (1)
  1. RIBOCICLIB [Suspect]
     Active Substance: RIBOCICLIB
     Indication: Breast cancer
     Route: 048
     Dates: start: 20250806

REACTIONS (3)
  - Death [Fatal]
  - Cerebrovascular accident [Unknown]
  - Syncope [Unknown]

NARRATIVE: CASE EVENT DATE: 20250808
